FAERS Safety Report 13767688 (Version 1)
Quarter: 2017Q3

REPORT INFORMATION
  Report Type: Spontaneous
  Country: US (occurrence: US)
  Receive Date: 20170719
  Receipt Date: 20170719
  Transmission Date: 20171127
  Serious: No
  Sender: FDA-Public Use
  Company Number: US-BAUSCH-BL-2016-021288

PATIENT
  Sex: Female

DRUGS (4)
  1. XIFAXAN [Suspect]
     Active Substance: RIFAXIMIN
     Indication: IRRITABLE BOWEL SYNDROME
     Route: 048
     Dates: start: 2015
  2. XIFAXAN [Suspect]
     Active Substance: RIFAXIMIN
     Indication: IRRITABLE BOWEL SYNDROME
     Route: 048
     Dates: start: 2014
  3. XIFAXAN [Suspect]
     Active Substance: RIFAXIMIN
     Indication: IMPAIRED GASTRIC EMPTYING
  4. XIFAXAN [Suspect]
     Active Substance: RIFAXIMIN
     Indication: IMPAIRED GASTRIC EMPTYING

REACTIONS (2)
  - Hunger [Unknown]
  - Intentional product use issue [Unknown]
